FAERS Safety Report 5805411-5 (Version None)
Quarter: 2008Q3

REPORT INFORMATION
  Report Type: 
  Country: None (occurrence: None)
  Receive Date: 20080708
  Receipt Date: 20080625
  Transmission Date: 20090109
  Serious: Yes (Other)
  Sender: FDA-Public Use
  Company Number: CHPA2008US10579

PATIENT
  Age: 48 Year
  Sex: Female
  Weight: 70.3 kg

DRUGS (1)
  1. VAGISTAT-1 [Suspect]
     Indication: VULVOVAGINAL MYCOTIC INFECTION
     Dosage: 300 MG, ONCE/SINGLE, VAGINAL
     Route: 067
     Dates: start: 20080613, end: 20080613

REACTIONS (4)
  - ABDOMINAL PAIN [None]
  - FOREIGN BODY TRAUMA [None]
  - GENITAL SWELLING [None]
  - WRONG TECHNIQUE IN DRUG USAGE PROCESS [None]
